FAERS Safety Report 4347571-1 (Version None)
Quarter: 2004Q2

REPORT INFORMATION
  Report Type: 
  Country: None (occurrence: None)
  Receive Date: 20040422
  Receipt Date: 20040406
  Transmission Date: 20050107
  Serious: Yes (Other)
  Sender: FDA-Public Use
  Company Number: USA040464463

PATIENT
  Age: 67 Year
  Sex: Female

DRUGS (1)
  1. EVISTA [Suspect]
     Indication: OSTEOPOROSIS
     Dosage: 60 MG/1 DAY
     Dates: start: 20010201

REACTIONS (8)
  - CARDIAC DISORDER [None]
  - COMPRESSION FRACTURE [None]
  - DYSPNOEA [None]
  - JOINT SWELLING [None]
  - MUSCLE CRAMP [None]
  - OEDEMA PERIPHERAL [None]
  - RESPIRATORY DISORDER [None]
  - THROMBOSIS [None]
